FAERS Safety Report 7350260-2 (Version None)
Quarter: 2011Q1

REPORT INFORMATION
  Report Type: 
  Country: None (occurrence: None)
  Receive Date: 20110314
  Receipt Date: 20110309
  Transmission Date: 20110831
  Serious: Yes (Hospitalization, Other)
  Sender: FDA-Public Use
  Company Number: BE-ABBOTT-11P-013-0710486-00

PATIENT
  Sex: Female

DRUGS (1)
  1. HUMIRA [Suspect]
     Indication: PSORIATIC ARTHROPATHY
     Dates: start: 20090506

REACTIONS (7)
  - ANEURYSM [None]
  - MEMORY IMPAIRMENT [None]
  - ANEURYSM RUPTURED [None]
  - HEADACHE [None]
  - URINARY INCONTINENCE [None]
  - SUBARACHNOID HAEMORRHAGE [None]
  - NECK PAIN [None]
